FAERS Safety Report 11692707 (Version 1)
Quarter: 2015Q4

REPORT INFORMATION
  Report Type: Spontaneous
  Country: US (occurrence: US)
  Receive Date: 20151103
  Receipt Date: 20151103
  Transmission Date: 20160304
  Serious: No
  Sender: FDA-Public Use
  Company Number: US-ENDO PHARMACEUTICALS INC.-FELO20150002

PATIENT
  Age: 80 Year
  Sex: Female

DRUGS (1)
  1. FELODIPINEEXTENDED-RELEASE TABLETS [Suspect]
     Active Substance: FELODIPINE
     Indication: HYPERTENSION
     Route: 065
     Dates: start: 201410

REACTIONS (2)
  - Headache [Not Recovered/Not Resolved]
  - Alopecia [Not Recovered/Not Resolved]

NARRATIVE: CASE EVENT DATE: 201411
